FAERS Safety Report 23121807 (Version 2)
Quarter: 2023Q4

REPORT INFORMATION
  Report Type: Report from Study
  Country: US (occurrence: US)
  Receive Date: 20231030
  Receipt Date: 20231206
  Transmission Date: 20240110
  Serious: Yes (Hospitalization, Other)
  Sender: FDA-Public Use
  Company Number: US-ABBVIE-5463627

PATIENT
  Sex: Female

DRUGS (2)
  1. RINVOQ [Suspect]
     Active Substance: UPADACITINIB
     Indication: Rheumatoid arthritis
     Dosage: STOP DATE 2023
     Route: 048
     Dates: start: 20230628
  2. RINVOQ [Suspect]
     Active Substance: UPADACITINIB
     Indication: Rheumatoid arthritis
     Route: 048

REACTIONS (5)
  - Shoulder arthroplasty [Recovered/Resolved]
  - Pneumonia aspiration [Recovered/Resolved]
  - Shoulder arthroplasty [Recovering/Resolving]
  - Pneumonia [Recovered/Resolved]
  - Pneumonia [Recovering/Resolving]

NARRATIVE: CASE EVENT DATE: 20230101
